FAERS Safety Report 9958163 (Version 1)
Quarter: 2014Q1

REPORT INFORMATION
  Report Type: Report from Study
  Country: US (occurrence: US)
  Receive Date: 20140304
  Receipt Date: 20140304
  Transmission Date: 20141002
  Serious: No
  Sender: FDA-Public Use
  Company Number: US-ABBVIE-13P-163-1093372-00

PATIENT
  Age: 48 Year
  Sex: Female

DRUGS (10)
  1. HUMIRA [Suspect]
     Indication: PSORIATIC ARTHROPATHY
     Dates: start: 20130327
  2. LABETALOL [Concomitant]
     Indication: BLOOD PRESSURE
  3. LEVOTHYROXINE [Concomitant]
     Indication: THYROID DISORDER
  4. DICLOFENAC [Concomitant]
     Indication: PSORIATIC ARTHROPATHY
  5. FOLIC ACID [Concomitant]
     Indication: PRODUCT USED FOR UNKNOWN INDICATION
  6. METHOTREXATE [Concomitant]
     Indication: PRODUCT USED FOR UNKNOWN INDICATION
  7. TRAMADOL HCL [Concomitant]
     Indication: PAIN
     Dosage: EVERY 8 HOURS AS NEEDED
  8. LISINOPRIL/HCTZ [Concomitant]
     Indication: BLOOD PRESSURE
     Dosage: 10/12.5MG DAILY
  9. SERTRALINE [Concomitant]
     Indication: DEPRESSION
     Dosage: 100 MG DAILY
  10. TYLENOL ARTHRITIS [Concomitant]
     Indication: PAIN

REACTIONS (2)
  - Injection site pain [Recovering/Resolving]
  - Injection site reaction [Recovering/Resolving]
